FAERS Safety Report 6688523-6 (Version None)
Quarter: 2010Q2

REPORT INFORMATION
  Report Type: 
  Country: None (occurrence: None)
  Receive Date: 20100420
  Receipt Date: 20100414
  Transmission Date: 20101027
  Serious: Yes (Hospitalization, Disabling)
  Sender: FDA-Public Use
  Company Number: JP-ASTRAZENECA-2010SE10411

PATIENT
  Age: 29470 Day
  Sex: Male
  Weight: 49 kg

DRUGS (5)
  1. ZOLADEX [Suspect]
     Indication: PROSTATE CANCER
     Route: 058
     Dates: start: 20091214, end: 20100305
  2. CASODEX [Suspect]
     Indication: PROSTATE CANCER
     Route: 048
     Dates: start: 20091214, end: 20100305
  3. BUFFERIN [Suspect]
     Indication: CAROTID ARTERIOSCLEROSIS
     Route: 048
     Dates: end: 20100310
  4. TAMSULOSIN HCL [Concomitant]
     Indication: DYSURIA
     Route: 048
  5. LIPITOR [Concomitant]
     Indication: HYPERLIPIDAEMIA
     Route: 048

REACTIONS (1)
  - INTERSTITIAL LUNG DISEASE [None]
